FAERS Safety Report 4690484-6 (Version None)
Quarter: 2005Q2

REPORT INFORMATION
  Report Type: 
  Country: None (occurrence: None)
  Receive Date: 20050615
  Receipt Date: 20050606
  Transmission Date: 20051028
  Serious: Yes (Other)
  Sender: FDA-Public Use
  Company Number: GB-ABBOTT-05P-167-0302558-00

PATIENT
  Age: 64 Year
  Sex: Female

DRUGS (4)
  1. HUMIRA [Suspect]
     Indication: RHEUMATOID ARTHRITIS
     Route: 058
     Dates: start: 20050120, end: 20050425
  2. GOLD [Concomitant]
     Indication: RHEUMATOID ARTHRITIS
     Route: 030
     Dates: start: 20020101, end: 20050101
  3. PREDNISOLONE [Concomitant]
     Indication: RHEUMATOID ARTHRITIS
     Route: 048
     Dates: start: 19900101
  4. PREDNISOLONE [Concomitant]
     Indication: ASTHMA

REACTIONS (2)
  - ALOPECIA [None]
  - DYSPNOEA EXACERBATED [None]
